FAERS Safety Report 20518850 (Version 1)
Quarter: 2022Q1

REPORT INFORMATION
  Report Type: Spontaneous
  Country: US (occurrence: US)
  Receive Date: 20220225
  Receipt Date: 20220225
  Transmission Date: 20220423
  Serious: No
  Sender: FDA-Public Use
  Company Number: US-GILEAD-2022-0571115

PATIENT
  Sex: Female

DRUGS (13)
  1. EPCLUSA [Suspect]
     Active Substance: SOFOSBUVIR\VELPATASVIR
     Indication: Chronic hepatitis C
     Dosage: 1 DOSAGE FORM, QD
     Route: 048
  2. AZITHROMYCIN [Concomitant]
     Active Substance: AZITHROMYCIN
  3. OXYCONTIN [Concomitant]
     Active Substance: OXYCODONE HYDROCHLORIDE
  4. OXYCODONE [Concomitant]
     Active Substance: OXYCODONE
  5. IBUPROFEN [Concomitant]
     Active Substance: IBUPROFEN
  6. DOXYLAMINE [Concomitant]
     Active Substance: DOXYLAMINE
  7. ALBUTEROL [Concomitant]
     Active Substance: ALBUTEROL
  8. LORAZEPAM [Concomitant]
     Active Substance: LORAZEPAM
  9. COMBIVENT [Concomitant]
     Active Substance: ALBUTEROL SULFATE\IPRATROPIUM BROMIDE
  10. DOCUSATE SODIUM [Concomitant]
     Active Substance: DOCUSATE SODIUM
  11. VITAMIN D3 [Concomitant]
     Active Substance: CHOLECALCIFEROL
  12. OMEPRAZOLE [Concomitant]
     Active Substance: OMEPRAZOLE
  13. OMEPRAZOLE [Concomitant]
     Active Substance: OMEPRAZOLE

REACTIONS (1)
  - Ulcer [Not Recovered/Not Resolved]
